FAERS Safety Report 9000014 (Version 2)
Quarter: 2013Q1

REPORT INFORMATION
  Report Type: Spontaneous
  Country: US (occurrence: US)
  Receive Date: 20130102
  Receipt Date: 20130124
  Transmission Date: 20140127
  Serious: Yes (Congenital Anomaly, Other)
  Sender: FDA-Public Use
  Company Number: US-PFIZER INC-2012329851

PATIENT
  Sex: Female

DRUGS (3)
  1. ZOLOFT [Suspect]
     Indication: DEPRESSION
     Dosage: UNK
     Route: 064
     Dates: start: 2006, end: 2008
  2. SERTRALINE HCL [Suspect]
     Indication: DEPRESSION
     Dosage: UNK
     Route: 064
  3. PRENATAL VITAMINS [Concomitant]
     Dosage: UNK
     Route: 064

REACTIONS (8)
  - Maternal exposure timing unspecified [Unknown]
  - Heart disease congenital [Unknown]
  - Exomphalos [Unknown]
  - Heterotaxia [Unknown]
  - Foetal growth restriction [Unknown]
  - Patent ductus arteriosus [Unknown]
  - Ventricular septal defect [Unknown]
  - Atrial septal defect [Unknown]
